FAERS Safety Report 25907543 (Version 1)
Quarter: 2025Q4

REPORT INFORMATION
  Report Type: Spontaneous
  Country: AU (occurrence: AU)
  Receive Date: 20251010
  Receipt Date: 20251010
  Transmission Date: 20260117
  Serious: Yes (Death, Other)
  Sender: RANBAXY
  Company Number: AU-SUN PHARMACEUTICAL INDUSTRIES LTD-2025RR-529458

PATIENT
  Age: 7 Decade
  Sex: Male

DRUGS (9)
  1. METHYLPREDNISOLONE [Suspect]
     Active Substance: METHYLPREDNISOLONE
     Indication: Idiopathic orbital inflammation
     Dosage: 1 GRAM, DAILY
     Route: 042
  2. GEMCITABINE [Suspect]
     Active Substance: GEMCITABINE
     Indication: Multiple organ dysfunction syndrome
     Dosage: UNK
     Route: 065
  3. GEMCITABINE [Suspect]
     Active Substance: GEMCITABINE
     Indication: Sepsis
  4. DEXAMETHASONE [Suspect]
     Active Substance: DEXAMETHASONE
     Indication: Multiple organ dysfunction syndrome
     Dosage: UNK
     Route: 065
  5. DEXAMETHASONE [Suspect]
     Active Substance: DEXAMETHASONE
     Indication: Sepsis
  6. CISPLATIN [Suspect]
     Active Substance: CISPLATIN
     Indication: Multiple organ dysfunction syndrome
     Dosage: UNK
     Route: 065
  7. CISPLATIN [Suspect]
     Active Substance: CISPLATIN
     Indication: Sepsis
  8. PEGASPARGASE [Suspect]
     Active Substance: PEGASPARGASE
     Indication: Sepsis
     Dosage: UNK
     Route: 065
  9. PEGASPARGASE [Suspect]
     Active Substance: PEGASPARGASE
     Indication: Multiple organ dysfunction syndrome

REACTIONS (2)
  - Enteritis [Fatal]
  - Condition aggravated [Recovering/Resolving]
